FAERS Safety Report 6330346-1 (Version None)
Quarter: 2009Q3

REPORT INFORMATION
  Report Type: 
  Country: None (occurrence: None)
  Receive Date: 20090827
  Receipt Date: 20080227
  Transmission Date: 20100115
  Serious: Yes (Other)
  Sender: FDA-Public Use
  Company Number: US-ASTRAZENECA-2007UW27342

PATIENT
  Age: 38 Year
  Sex: Female
  Weight: 75.3 kg

DRUGS (18)
  1. SEROQUEL [Suspect]
     Indication: DEPRESSION
     Dosage: 25 MG, 100 MG, 200 MG, 300 MG, 600 MG, 800 MG
     Route: 048
     Dates: start: 20030901
  2. SEROQUEL [Suspect]
     Indication: SCHIZOAFFECTIVE DISORDER
     Dosage: 25 MG, 100 MG, 200 MG, 300 MG, 600 MG, 800 MG
     Route: 048
     Dates: start: 20030901
  3. SEROQUEL [Suspect]
     Dosage: 25-300 MG
     Route: 048
     Dates: start: 20040126
  4. SEROQUEL [Suspect]
     Dosage: 25-300 MG
     Route: 048
     Dates: start: 20040126
  5. PAROXETINE HCL [Concomitant]
     Route: 048
     Dates: start: 20071115
  6. TOPAMAX [Concomitant]
     Dates: start: 20060101
  7. AMARYL [Concomitant]
     Route: 048
     Dates: start: 20050818
  8. EFFEXOR XR [Concomitant]
     Route: 048
     Dates: start: 20050818
  9. TENORMIN [Concomitant]
     Route: 048
     Dates: start: 20050818
  10. SINGULAIR [Concomitant]
     Route: 048
     Dates: start: 20050818
  11. FLAGYL [Concomitant]
     Route: 048
     Dates: start: 20050818
  12. DIOVAN [Concomitant]
     Route: 048
     Dates: start: 20050818
  13. ALBUTEROL [Concomitant]
     Dosage: 90 MCG 2 PUFFS EVERY 4 HRS/ PRN
     Dates: start: 20040331
  14. PRAVACHOL [Concomitant]
     Route: 048
     Dates: start: 20050816
  15. ZITHROMAX [Concomitant]
     Dates: start: 20060314
  16. METHYLPREDNISOLONE [Concomitant]
     Dates: start: 20040126, end: 20040202
  17. OXCARBAZEPINE [Concomitant]
     Dates: start: 20040126
  18. ATIVAN [Concomitant]
     Dosage: 2 MG 10 AM
     Route: 048
     Dates: start: 20040127

REACTIONS (5)
  - BLOOD CHOLESTEROL INCREASED [None]
  - COLLAPSE OF LUNG [None]
  - DIABETES MELLITUS [None]
  - HYPERTENSION [None]
  - TYPE 2 DIABETES MELLITUS [None]
